FAERS Safety Report 7760518-0 (Version None)
Quarter: 2011Q3

REPORT INFORMATION
  Report Type: 
  Country: None (occurrence: None)
  Receive Date: 20110919
  Receipt Date: 20110602
  Transmission Date: 20111222
  Serious: No
  Sender: FDA-Public Use
  Company Number: US-ALLERGAN-1102794US

PATIENT
  Age: 40 Year
  Sex: Female

DRUGS (3)
  1. LATISSE [Suspect]
     Indication: GROWTH OF EYELASHES
     Dosage: UNK
     Route: 061
     Dates: start: 20090101, end: 20110401
  2. LATISSE [Suspect]
     Dosage: UNK
     Dates: start: 20110301
  3. LATISSE [Suspect]
     Dosage: UNK
     Dates: start: 20101001, end: 20110220

REACTIONS (5)
  - BLEPHAROPACHYNSIS [None]
  - EYELID PAIN [None]
  - EYELIDS PRURITUS [None]
  - MADAROSIS [None]
  - HAIR GROWTH ABNORMAL [None]
